FAERS Safety Report 21225852 (Version 1)
Quarter: 2022Q3

REPORT INFORMATION
  Report Type: Spontaneous
  Country: DK (occurrence: DK)
  Receive Date: 20220818
  Receipt Date: 20220818
  Transmission Date: 20221027
  Serious: Yes (Hospitalization, Other)
  Sender: FDA-Public Use
  Company Number: None

PATIENT
  Age: 81 Year
  Sex: Female
  Weight: 75 kg

DRUGS (3)
  1. XGEVA [Suspect]
     Active Substance: DENOSUMAB
     Indication: Hypercalcaemia of malignancy
     Dosage: 120 MILLIGRAM, Q4WK
     Route: 065
     Dates: start: 201910
  2. IBRANCE [Suspect]
     Active Substance: PALBOCICLIB
     Indication: Breast neoplasm
     Dosage: 75 MILLIGRAM, QD (DOSAGE: 1 CAPSULE FOR 21 DAYS AT A TIME, STRENGTH: 75 MILLIGRA)
     Route: 048
     Dates: start: 201910, end: 202204
  3. FULVESTRANT [Suspect]
     Active Substance: FULVESTRANT
     Indication: Breast neoplasm
     Dosage: 500 MILLIGRAM, QMO
     Route: 065
     Dates: start: 201910

REACTIONS (3)
  - Ascites [Not Recovered/Not Resolved]
  - Portal vein pressure increased [Not Recovered/Not Resolved]
  - Hepatic enzyme abnormal [Recovering/Resolving]

NARRATIVE: CASE EVENT DATE: 20220301
